FAERS Safety Report 16975675 (Version 2)
Quarter: 2019Q4

REPORT INFORMATION
  Report Type: Spontaneous
  Country: FR (occurrence: FR)
  Receive Date: 20191030
  Receipt Date: 20191128
  Transmission Date: 20200122
  Serious: Yes (Death)
  Sender: FDA-Public Use
  Company Number: FR-009507513-1910FRA013665

PATIENT
  Age: 70 Year
  Sex: Female
  Weight: 82 kg

DRUGS (10)
  1. ORBENINE [Suspect]
     Active Substance: CLOXACILLIN SODIUM
     Indication: STAPHYLOCOCCAL INFECTION
     Dosage: 8 GRAM, 1 DAY (QD)
     Route: 042
     Dates: start: 20190904, end: 20190923
  2. ANCOTIL [Suspect]
     Active Substance: FLUCYTOSINE
     Indication: ENDOCARDITIS CANDIDA
     Dosage: 50 MILLIGRAM/KILOGRAM, 1 DAY (QD)
     Route: 042
     Dates: start: 20190909, end: 20190918
  3. ADRENALINE AGUETTANT SANS SULFITE [Suspect]
     Active Substance: EPINEPHRINE
     Indication: ANAPHYLACTIC SHOCK
     Dosage: UNK
     Route: 042
     Dates: start: 20190910, end: 20190914
  4. UMULINE [Suspect]
     Active Substance: INSULIN HUMAN
     Indication: PRODUCT USED FOR UNKNOWN INDICATION
     Dosage: UNK
     Route: 058
     Dates: start: 20190802, end: 20190923
  5. HEPARIN SODIUM. [Suspect]
     Active Substance: HEPARIN SODIUM
     Indication: THROMBOSIS
     Dosage: 700 INTERNATIONAL UNIT, 1 HOUR (QH)
     Route: 058
     Dates: start: 20190812, end: 20190922
  6. PANTOPRAZOLE SODIUM. [Suspect]
     Active Substance: PANTOPRAZOLE SODIUM
     Indication: PRODUCT USED FOR UNKNOWN INDICATION
     Dosage: 40 MILLIGRAM, 1 DAY (QD)
     Route: 042
     Dates: start: 20190801, end: 20190923
  7. KARDEGIC [Suspect]
     Active Substance: ASPIRIN DL-LYSINE
     Indication: AORTIC BYPASS
     Dosage: 1 DOSAGE FORM, 1 DAY (QD)
     Route: 057
     Dates: end: 20190923
  8. CANCIDAS [Suspect]
     Active Substance: CASPOFUNGIN ACETATE
     Indication: ENDOCARDITIS CANDIDA
     Dosage: 1 DOSAGE FORM, 1 DAY (QD), POWDER FOR SOLUTION TO DILUTE FOR  INFUSION
     Route: 042
     Dates: start: 20190909, end: 20190913
  9. NOREPINEPHRINE. [Suspect]
     Active Substance: NOREPINEPHRINE
     Indication: ANAPHYLACTIC SHOCK
     Dosage: UNK
     Route: 042
     Dates: start: 20190910, end: 20190923
  10. CORDARONE [Suspect]
     Active Substance: AMIODARONE HYDROCHLORIDE
     Indication: ATRIAL FIBRILLATION
     Dosage: UNK, SOLUTION FOR INJECTION IN AMPOULE, STRENGTH: 150 MILLIGRAM PER 3 MILLILITER
     Route: 042
     Dates: start: 20190911, end: 20190923

REACTIONS (5)
  - Pulmonary alveolar haemorrhage [Fatal]
  - Pancytopenia [Fatal]
  - Haemoptysis [Fatal]
  - Melaena [Fatal]
  - Septic shock [Fatal]

NARRATIVE: CASE EVENT DATE: 20190913
